FAERS Safety Report 6673809-1 (Version None)
Quarter: 2010Q2

REPORT INFORMATION
  Report Type: 
  Country: None (occurrence: None)
  Receive Date: 20100407
  Receipt Date: 20100330
  Transmission Date: 20101027
  Serious: Yes (Other)
  Sender: FDA-Public Use
  Company Number: DSA_42790_2010

PATIENT
  Sex: Female

DRUGS (1)
  1. XENAZINE [Suspect]
     Indication: HUNTINGTON'S CHOREA
     Dosage: (DF)
     Dates: start: 20090101

REACTIONS (3)
  - DEPRESSION [None]
  - DRUG ABUSE [None]
  - LOSS OF EMPLOYMENT [None]
